FAERS Safety Report 5852080-4 (Version None)
Quarter: 2008Q3

REPORT INFORMATION
  Report Type: 
  Country: None (occurrence: None)
  Receive Date: 20080819
  Receipt Date: 20080819
  Transmission Date: 20090109
  Serious: Yes (Hospitalization)
  Sender: FDA-Public Use
  Company Number: None

PATIENT
  Age: 72 Year
  Sex: Female
  Weight: 86 kg

DRUGS (8)
  1. WARFARIN SODIUM [Suspect]
     Indication: ATRIAL FIBRILLATION
     Dosage: 5MG DAILY PO  (DURATION: CHRONIC)
     Route: 048
  2. ASPIRIN [Suspect]
     Indication: ATRIAL FIBRILLATION
     Dosage: 81MG DAILY PO  (DURATION: CHRONIC)
     Route: 048
  3. FOSAMAX [Concomitant]
  4. ASPIRIN [Concomitant]
  5. LESCOL [Concomitant]
  6. TOPROL-XL [Concomitant]
  7. PRILOSEC [Concomitant]
  8. DIGOXIN [Concomitant]

REACTIONS (3)
  - ANAEMIA [None]
  - GASTROINTESTINAL HAEMORRHAGE [None]
  - INTERNATIONAL NORMALISED RATIO INCREASED [None]
